FAERS Safety Report 8196427-5 (Version None)
Quarter: 2012Q1

REPORT INFORMATION
  Report Type: 
  Country: None (occurrence: None)
  Receive Date: 20120309
  Receipt Date: 20120305
  Transmission Date: 20120608
  Serious: Yes (Other)
  Sender: FDA-Public Use
  Company Number: BR-PFIZER INC-2012059585

PATIENT
  Age: 53 Year
  Sex: Female

DRUGS (3)
  1. VARENICLINE TARTRATE [Suspect]
     Indication: SMOKING CESSATION THERAPY
     Dosage: UNK
     Route: 048
  2. VARENICLINE TARTRATE [Suspect]
     Dosage: 2 (UNSPECIFIED UNIT), UNSPECIFIED FREQUENCY
     Route: 048
  3. CLONAZEPAM [Concomitant]
     Indication: DEPRESSION
     Dosage: 2 (UNSPECIFIED UNIT), UNSPECIFIED FREQUENCY

REACTIONS (1)
  - APATHY [None]
